FAERS Safety Report 17828933 (Version 5)
Quarter: 2020Q4

REPORT INFORMATION
  Report Type: Spontaneous
  Country: US (occurrence: US)
  Receive Date: 20200527
  Receipt Date: 20201026
  Transmission Date: 20210113
  Serious: Yes (Hospitalization)
  Sender: FDA-Public Use
  Company Number: US-VERTEX PHARMACEUTICALS-2020-011608

PATIENT
  Age: 39 Year
  Sex: Female
  Weight: 93 kg

DRUGS (5)
  1. TRIKAFTA [Suspect]
     Active Substance: ELEXACAFTOR\IVACAFTOR\TEZACAFTOR
     Indication: CYSTIC FIBROSIS
     Dosage: ELEXACAFTOR 100MG/ TEZAACFTOR 50MG/ IVACAFTOR 75MG, IVACAFTOR 150MG, TRADITIONAL DOSING
     Route: 048
     Dates: start: 20191231
  2. CREON [Concomitant]
     Active Substance: PANCRELIPASE AMYLASE\PANCRELIPASE LIPASE\PANCRELIPASE PROTEASE
     Dosage: 2 WITH MEALS AND 1 WITH SNACKS
  3. MIRENA [Concomitant]
     Active Substance: LEVONORGESTREL
     Dosage: UNK
  4. LINZESS [Concomitant]
     Active Substance: LINACLOTIDE
     Dosage: 290 MG, QD
  5. COLISTIMETHATE [COLISTIMETHATE SODIUM] [Concomitant]
     Active Substance: COLISTIMETHATE SODIUM
     Dosage: UNK
     Dates: end: 2020

REACTIONS (8)
  - Malaise [Recovered/Resolved]
  - Wheezing [Recovered/Resolved]
  - Weight increased [Unknown]
  - Dyspnoea [Unknown]
  - Infective pulmonary exacerbation of cystic fibrosis [Unknown]
  - Breath sounds abnormal [Unknown]
  - Oedema [Unknown]
  - Night sweats [Unknown]

NARRATIVE: CASE EVENT DATE: 2020
